FAERS Safety Report 19472987 (Version 1)
Quarter: 2021Q2

REPORT INFORMATION
  Report Type: Spontaneous
  Country: JP (occurrence: JP)
  Receive Date: 20210629
  Receipt Date: 20210629
  Transmission Date: 20210717
  Serious: Yes (Hospitalization, Other)
  Sender: FDA-Public Use
  Company Number: JP-MYOVANT SCIENCES GMBH-2019MYSCI0900022

PATIENT
  Age: 45 Year
  Sex: Female

DRUGS (4)
  1. RELUMINA [Suspect]
     Active Substance: RELUGOLIX
     Indication: UTERINE LEIOMYOMA
     Dosage: 40 MILLIGRAM, QD
     Route: 048
     Dates: start: 20190614
  2. TRANSAMIN [Concomitant]
     Active Substance: TRANEXAMIC ACID
     Indication: PRODUCT USED FOR UNKNOWN INDICATION
     Dosage: UNK
     Route: 065
  3. ADONA                              /00056903/ [Concomitant]
     Active Substance: CARBAZOCHROME SODIUM SULFONATE
     Indication: PRODUCT USED FOR UNKNOWN INDICATION
     Dosage: UNK
     Route: 065
  4. FERROUS SODIUM CITRATE [Concomitant]
     Active Substance: SODIUM FERROUS CITRATE
     Indication: PRODUCT USED FOR UNKNOWN INDICATION
     Route: 065

REACTIONS (3)
  - Haemoglobin decreased [Recovering/Resolving]
  - Genital haemorrhage [Recovering/Resolving]
  - Hot flush [Unknown]

NARRATIVE: CASE EVENT DATE: 20190618
